FAERS Safety Report 21104187 (Version 1)
Quarter: 2022Q3

REPORT INFORMATION
  Report Type: Spontaneous
  Country: US (occurrence: None)
  Receive Date: 20220720
  Receipt Date: 20220720
  Transmission Date: 20221027
  Serious: No
  Sender: FDA-Public Use
  Company Number: 2022A258686

PATIENT
  Sex: Male
  Weight: 84.8 kg

DRUGS (1)
  1. BUDESONIDE\FORMOTEROL\GLYCOPYRRONIUM [Suspect]
     Active Substance: BUDESONIDE\FORMOTEROL\GLYCOPYRRONIUM
     Indication: Wheezing
     Dosage: 160/9/4.8MCG INHALER, 2 PUFFS TWICE DAILY
     Route: 055

REACTIONS (3)
  - Lung disorder [Unknown]
  - Device delivery system issue [Unknown]
  - Intentional device misuse [Unknown]
